FAERS Safety Report 9706045 (Version 1)
Quarter: 2013Q4

REPORT INFORMATION
  Report Type: Spontaneous
  Country: CN (occurrence: CN)
  Receive Date: 20131123
  Receipt Date: 20131123
  Transmission Date: 20140711
  Serious: Yes (Death, Other)
  Sender: FDA-Public Use
  Company Number: PHHY2013CN132843

PATIENT
  Age: 5 Year
  Sex: Male

DRUGS (2)
  1. VALPROIC ACID [Suspect]
     Indication: EPILEPSY
     Dosage: 30 MG/KG,PER DAY
  2. LAMOTRIGINE [Concomitant]

REACTIONS (16)
  - Drug-induced liver injury [Fatal]
  - Alanine aminotransferase increased [Fatal]
  - Aspartate aminotransferase increased [Fatal]
  - Blood albumin increased [Fatal]
  - Blood bilirubin increased [Fatal]
  - Bilirubin conjugated increased [Fatal]
  - Ammonia increased [Fatal]
  - Prothrombin time prolonged [Fatal]
  - Prothrombin level decreased [Fatal]
  - Haemorrhage [Fatal]
  - Asthenia [Fatal]
  - Oedema peripheral [Fatal]
  - Gamma-glutamyltransferase increased [Fatal]
  - Astrocytoma [Unknown]
  - Hepatic encephalopathy [Unknown]
  - Convulsion [Unknown]
